FAERS Safety Report 9140149 (Version 1)
Quarter: 2013Q1

REPORT INFORMATION
  Report Type: Spontaneous
  Country: US (occurrence: US)
  Receive Date: 20130305
  Receipt Date: 20130305
  Transmission Date: 20140127
  Serious: Yes (Other)
  Sender: FDA-Public Use
  Company Number: GXBR2013US000661

PATIENT
  Sex: Female
  Weight: 80.73 kg

DRUGS (6)
  1. ALPRAZOLAM TABLETS USP [Suspect]
     Indication: ANXIETY
     Dosage: 3-4 TABLETS (0.5MG EACH) QD, PRN
  2. CLONIDINE [Interacting]
     Indication: HYPERTENSION
     Dosage: 0.2 MG, BID
     Route: 048
     Dates: start: 201302
  3. CLONIDINE [Interacting]
     Dosage: 0.1 MG, BID
     Dates: start: 20130102, end: 201302
  4. OMEPRAZOLE [Concomitant]
     Indication: GASTROOESOPHAGEAL REFLUX DISEASE
     Dosage: UNK
  5. CIMETIDINE [Concomitant]
     Indication: DYSPEPSIA
     Dosage: UNK DF, UNK
  6. PROZAC [Concomitant]
     Indication: DEPRESSION
     Dosage: UNK DF, UNK

REACTIONS (2)
  - Blood pressure decreased [Not Recovered/Not Resolved]
  - Drug interaction [Not Recovered/Not Resolved]
